FAERS Safety Report 6765145-X (Version None)
Quarter: 2010Q2

REPORT INFORMATION
  Report Type: 
  Country: None (occurrence: None)
  Receive Date: 20100610
  Receipt Date: 20100610
  Transmission Date: 20101027
  Serious: No
  Sender: FDA-Public Use
  Company Number: None

PATIENT
  Age: 47 Year
  Sex: Female
  Weight: 122.4712 kg

DRUGS (1)
  1. ZYPREXA [Suspect]
     Indication: SCHIZOAFFECTIVE DISORDER
     Dosage: 40 MG ONCE AT NIGHT BY MOUTH
     Route: 048
     Dates: start: 20070701, end: 20090101

REACTIONS (3)
  - EMOTIONAL DISORDER [None]
  - FEELING ABNORMAL [None]
  - PARAESTHESIA [None]
